FAERS Safety Report 10958661 (Version 2)
Quarter: 2015Q4

REPORT INFORMATION
  Report Type: Spontaneous
  Country: BE (occurrence: BE)
  Receive Date: 20150326
  Receipt Date: 20151015
  Transmission Date: 20160304
  Serious: Yes (Other)
  Sender: FDA-Public Use
  Company Number: BE-BAYER-2015-068899

PATIENT
  Age: 0 Day
  Sex: Female
  Weight: 4.48 kg

DRUGS (1)
  1. MIRENA [Suspect]
     Active Substance: LEVONORGESTREL
     Route: 064

REACTIONS (3)
  - Foetal macrosomia [None]
  - Trisomy 18 [None]
  - Foetal exposure timing unspecified [None]

NARRATIVE: CASE EVENT DATE: 20150623
